FAERS Safety Report 6831598-1 (Version None)
Quarter: 2010Q3

REPORT INFORMATION
  Report Type: 
  Country: None (occurrence: None)
  Receive Date: 20100712
  Receipt Date: 20100630
  Transmission Date: 20110219
  Serious: Yes (Other)
  Sender: FDA-Public Use
  Company Number: PHHY2010US42723

PATIENT
  Sex: Male
  Weight: 87.1 kg

DRUGS (8)
  1. DICLOFENAC SODIUM [Suspect]
     Indication: ARTHRALGIA
  2. LIPITOR [Suspect]
     Indication: BLOOD CHOLESTEROL INCREASED
     Dosage: 10 MG PER DAY
     Route: 048
  3. LIPITOR [Suspect]
     Dosage: 20 MG PER DAY
     Route: 048
     Dates: end: 20100601
  4. IBUPROFEN [Suspect]
     Indication: ARTHRALGIA
  5. AMLODIPINE [Concomitant]
     Dosage: 5 MG DAILY
     Route: 048
  6. DIOVAN [Concomitant]
     Dosage: 320 MG DAILY
     Route: 048
  7. ASPIRIN [Concomitant]
     Dosage: 81 MG DAILY
     Route: 048
  8. DEXAMETHASONE ACETATE [Concomitant]
     Dosage: 4 MG DAILY
     Route: 048
     Dates: start: 20100501, end: 20100601

REACTIONS (4)
  - BLOOD CHOLESTEROL INCREASED [None]
  - DRUG INEFFECTIVE [None]
  - GLUCOSE TOLERANCE IMPAIRED [None]
  - MYALGIA [None]
